FAERS Safety Report 8515743-8 (Version None)
Quarter: 2012Q3

REPORT INFORMATION
  Report Type: 
  Country: None (occurrence: None)
  Receive Date: 20120717
  Receipt Date: 20120713
  Transmission Date: 20120928
  Serious: Yes (Death, Hospitalization, Other)
  Sender: FDA-Public Use
  Company Number: PHEH2011US00460

PATIENT
  Sex: Male

DRUGS (19)
  1. LUPRON [Concomitant]
  2. ZOLOFT [Concomitant]
  3. FEXOFENADINE HYDROCHLORIDE [Concomitant]
     Dosage: 180 MG, QD
     Route: 048
  4. PRILOSEC [Concomitant]
  5. ZOLADEX [Concomitant]
  6. DOCETAXEL [Concomitant]
  7. CEFUROXIME AXETIL [Concomitant]
     Dosage: UNK UKN, BID
     Route: 048
  8. KETOCONAZOLE [Concomitant]
  9. SIMVASTATIN [Concomitant]
     Dosage: 80 MG, QD
     Route: 048
  10. GATIFLOXACIN [Concomitant]
     Dosage: 400 MG, QD
     Route: 048
  11. ZOMETA [Suspect]
     Indication: METASTASES TO PROSTATE
     Dosage: 4 MG, QMO
     Route: 042
     Dates: start: 20060518, end: 20080101
  12. CASODEX [Concomitant]
  13. OXYCODONE HCL [Concomitant]
  14. SILDENAFIL CITRATE [Concomitant]
     Dosage: 100 MG, UNK
     Route: 048
  15. RADIATION THERAPY [Concomitant]
  16. ZANTAC [Concomitant]
  17. TERAZOSIN HCL [Concomitant]
  18. PREDNISONE [Concomitant]
     Dosage: 5 MG, BID
     Route: 048
  19. VARDENAFIL HYDROCHLORIDE (LEVITRA) [Concomitant]
     Route: 048

REACTIONS (63)
  - BACK PAIN [None]
  - BONE PAIN [None]
  - HYPOTENSION [None]
  - HYPONATRAEMIA [None]
  - SINUSITIS [None]
  - DRUG ABUSE [None]
  - DEATH [None]
  - PAIN [None]
  - DYSLIPIDAEMIA [None]
  - ABDOMINAL PAIN [None]
  - DIARRHOEA [None]
  - NEOPLASM PROGRESSION [None]
  - JOINT SWELLING [None]
  - DYSARTHRIA [None]
  - INSOMNIA [None]
  - HIP FRACTURE [None]
  - LUNG NEOPLASM [None]
  - INFECTION [None]
  - OVERGROWTH BACTERIAL [None]
  - VIITH NERVE PARALYSIS [None]
  - DIASTOLIC DYSFUNCTION [None]
  - LEFT ATRIAL DILATATION [None]
  - ANHEDONIA [None]
  - MITRAL VALVE INCOMPETENCE [None]
  - NOCTURIA [None]
  - BONE LESION [None]
  - DYSPNOEA EXERTIONAL [None]
  - FATIGUE [None]
  - PAIN IN JAW [None]
  - ALOPECIA [None]
  - DYSPEPSIA [None]
  - NEUROPATHY PERIPHERAL [None]
  - METASTASES TO LIVER [None]
  - METASTASES TO BONE [None]
  - HOT FLUSH [None]
  - CELLULITIS [None]
  - TENDONITIS [None]
  - SPINAL COLUMN STENOSIS [None]
  - OSTEOARTHRITIS [None]
  - OSTEONECROSIS OF JAW [None]
  - INJURY [None]
  - DISABILITY [None]
  - STRESS [None]
  - OEDEMA [None]
  - HEPATITIS [None]
  - HYPOAESTHESIA [None]
  - INFLAMMATION [None]
  - GASTROOESOPHAGEAL REFLUX DISEASE [None]
  - MYOCARDIAL ISCHAEMIA [None]
  - FALL [None]
  - OROPHARYNGEAL PAIN [None]
  - DRY MOUTH [None]
  - MUCOSAL ULCERATION [None]
  - METASTASES TO ADRENALS [None]
  - TACHYCARDIA [None]
  - RHINITIS ALLERGIC [None]
  - TRICUSPID VALVE INCOMPETENCE [None]
  - CANCER PAIN [None]
  - HYPERCHOLESTEROLAEMIA [None]
  - DYSPHONIA [None]
  - INTESTINAL OBSTRUCTION [None]
  - NEOPLASM MALIGNANT [None]
  - ANAEMIA [None]
